FAERS Safety Report 15520395 (Version 5)
Quarter: 2019Q1

REPORT INFORMATION
  Report Type: Report from Study
  Country: US (occurrence: US)
  Receive Date: 20181017
  Receipt Date: 20190111
  Transmission Date: 20190417
  Serious: Yes (Hospitalization, Other)
  Sender: FDA-Public Use
  Company Number: US-ACTELION-A-US2018-168643

PATIENT
  Age: 72 Year
  Sex: Female
  Weight: 112.47 kg

DRUGS (4)
  1. AMOXICILLIN. [Suspect]
     Active Substance: AMOXICILLIN
     Indication: ABSCESS JAW
     Dosage: 500 MG, UNK
     Route: 065
     Dates: end: 20180725
  2. OPSUMIT [Suspect]
     Active Substance: MACITENTAN
     Dosage: 10 MG, QD
     Route: 048
     Dates: start: 20180129
  3. PROZAC [Concomitant]
     Active Substance: FLUOXETINE HYDROCHLORIDE
  4. OPSUMIT [Suspect]
     Active Substance: MACITENTAN
     Indication: PULMONARY ARTERIAL HYPERTENSION
     Dosage: 10 MG, QD
     Route: 048
     Dates: start: 20140611

REACTIONS (25)
  - Weight increased [Recovering/Resolving]
  - Pain [Unknown]
  - Gastrointestinal infection [Unknown]
  - Peripheral swelling [Recovering/Resolving]
  - Affective disorder [Unknown]
  - Nausea [Recovered/Resolved]
  - Ulcer [Recovering/Resolving]
  - Cartilage injury [Unknown]
  - Feeling abnormal [Not Recovered/Not Resolved]
  - Vomiting [Unknown]
  - Oedema [Unknown]
  - Drug reaction with eosinophilia and systemic symptoms [Not Recovered/Not Resolved]
  - Unevaluable event [Not Recovered/Not Resolved]
  - Micturition urgency [Recovering/Resolving]
  - Blood glucose increased [Unknown]
  - Condition aggravated [Recovering/Resolving]
  - Rehabilitation therapy [Not Recovered/Not Resolved]
  - Peptic ulcer [Unknown]
  - Gout [Unknown]
  - Discomfort [Recovering/Resolving]
  - Abscess jaw [Recovered/Resolved]
  - Exploratory operation [Recovering/Resolving]
  - Oedema peripheral [Recovering/Resolving]
  - Fungal infection [Recovering/Resolving]
  - Bronchitis [Unknown]

NARRATIVE: CASE EVENT DATE: 201801
